FAERS Safety Report 17045560 (Version 1)
Quarter: 2019Q4

REPORT INFORMATION
  Report Type: Spontaneous
  Country: GB (occurrence: GB)
  Receive Date: 20191118
  Receipt Date: 20191118
  Transmission Date: 20200122
  Serious: Yes (Life-Threatening, Hospitalization, Congenital Anomaly)
  Sender: FDA-Public Use
  Company Number: GB-CELLTRION-2019-UK-000178

PATIENT
  Age: 3 Day
  Sex: Female
  Weight: 3.02 kg

DRUGS (1)
  1. FLUOXETINE [Suspect]
     Active Substance: FLUOXETINE HYDROCHLORIDE
     Indication: PRODUCT USED FOR UNKNOWN INDICATION
     Dosage: 20 MG
     Route: 015

REACTIONS (2)
  - Foetal exposure during pregnancy [Unknown]
  - Congenital central hypoventilation syndrome [Not Recovered/Not Resolved]
